FAERS Safety Report 11859733 (Version 2)
Quarter: 2016Q2

REPORT INFORMATION
  Report Type: Spontaneous
  Country: US (occurrence: US)
  Receive Date: 20151222
  Receipt Date: 20160428
  Transmission Date: 20160815
  Serious: Yes (Death, Life-Threatening, Hospitalization)
  Sender: FDA-Public Use
  Company Number: US-HOSPIRA-3114638

PATIENT
  Age: 81 Year
  Sex: Male
  Weight: 79 kg

DRUGS (20)
  1. CYTARABINE. [Suspect]
     Active Substance: CYTARABINE
     Indication: ACUTE MYELOID LEUKAEMIA
     Dosage: TWICE DAILY ON DAYS 1-10 OF EACH 28-DAY CYCLE
     Route: 058
     Dates: start: 20131010, end: 20131019
  2. AUGMENTIN [Concomitant]
     Active Substance: AMOXICILLIN\CLAVULANATE POTASSIUM
     Indication: ANTIBIOTIC PROPHYLAXIS
     Dosage: 875
     Route: 048
     Dates: start: 20131024
  3. PROSCAR [Concomitant]
     Active Substance: FINASTERIDE
     Indication: BENIGN PROSTATIC HYPERPLASIA
     Dosage: DAILY
     Route: 048
     Dates: start: 1998
  4. EXJADE [Suspect]
     Active Substance: DEFERASIROX
     Indication: IRON OVERLOAD
     Dosage: DAILY
     Route: 048
     Dates: start: 201306, end: 20131111
  5. PARACETAMOL [Concomitant]
     Active Substance: ACETAMINOPHEN
     Indication: PAIN
     Route: 048
     Dates: start: 1993
  6. UROXATRAL [Concomitant]
     Active Substance: ALFUZOSIN HYDROCHLORIDE
     Indication: PRODUCT USED FOR UNKNOWN INDICATION
     Dosage: DAILY
     Route: 048
     Dates: start: 2007
  7. NEXIUM [Concomitant]
     Active Substance: ESOMEPRAZOLE MAGNESIUM
     Indication: DYSPEPSIA
     Dosage: DAILY
     Route: 048
     Dates: start: 2008
  8. AMARYL [Concomitant]
     Active Substance: GLIMEPIRIDE
     Indication: DIABETES MELLITUS
     Dosage: DAILY
     Route: 048
     Dates: start: 1993
  9. ACTOS [Concomitant]
     Active Substance: PIOGLITAZONE HYDROCHLORIDE
     Indication: DIABETES MELLITUS
     Dosage: DAILY
     Route: 048
     Dates: start: 2011
  10. ERGOCALCIFEROL. [Concomitant]
     Active Substance: ERGOCALCIFEROL
     Indication: ROUTINE HEALTH MAINTENANCE
     Dosage: DAILY
     Route: 048
     Dates: start: 2010
  11. CIALIS [Concomitant]
     Active Substance: TADALAFIL
     Indication: ERECTILE DYSFUNCTION
     Dosage: DAILY
     Route: 048
     Dates: start: 2007
  12. MONOPRIL [Suspect]
     Active Substance: FOSINOPRIL SODIUM
     Indication: BLOOD PRESSURE MEASUREMENT
     Dosage: DAILY
     Route: 048
     Dates: start: 1998
  13. ZYLOPRIM [Concomitant]
     Active Substance: ALLOPURINOL
     Indication: BLOOD URIC ACID
     Dosage: DAILY
     Route: 048
     Dates: start: 2010
  14. ASTELIN                            /00085801/ [Concomitant]
     Active Substance: AZELASTINE HYDROCHLORIDE
     Indication: HYPERSENSITIVITY
     Route: 045
     Dates: start: 1998
  15. ZOCOR [Concomitant]
     Active Substance: SIMVASTATIN
     Indication: HYPERLIPIDAEMIA
     Dosage: DAILY
     Route: 048
     Dates: start: 201308
  16. JANUVIA [Concomitant]
     Active Substance: SITAGLIPTIN PHOSPHATE
     Indication: DIABETES MELLITUS
     Dosage: DAILY
     Route: 048
     Dates: start: 201306
  17. INVESTIGATIONAL DRUG [Suspect]
     Active Substance: INVESTIGATIONAL PRODUCT
     Indication: ACUTE MYELOID LEUKAEMIA
     Route: 048
     Dates: start: 20131012, end: 20131030
  18. TYLENOL [Concomitant]
     Active Substance: ACETAMINOPHEN
     Indication: SLEEP DISORDER
     Route: 048
     Dates: start: 2011
  19. PRECOSE [Concomitant]
     Active Substance: ACARBOSE
     Indication: DIABETES MELLITUS
     Route: 048
     Dates: start: 1998
  20. ZOVIRAX [Concomitant]
     Active Substance: ACYCLOVIR
     Indication: ANTIBIOTIC PROPHYLAXIS
     Dosage: DAILY
     Route: 048
     Dates: start: 20131030, end: 20131104

REACTIONS (5)
  - Stenotrophomonas infection [Not Recovered/Not Resolved]
  - Enterobacter sepsis [Recovered/Resolved]
  - Drug ineffective [Not Recovered/Not Resolved]
  - Multiple organ dysfunction syndrome [Fatal]
  - Febrile neutropenia [Recovered/Resolved]

NARRATIVE: CASE EVENT DATE: 20131010
